FAERS Safety Report 10068403 (Version 2)
Quarter: 2014Q2

REPORT INFORMATION
  Report Type: Spontaneous
  Country: US (occurrence: US)
  Receive Date: 20140409
  Receipt Date: 20140424
  Transmission Date: 20141212
  Serious: Yes (Life-Threatening, Hospitalization)
  Sender: FDA-Public Use
  Company Number: US-JNJFOC-20140402721

PATIENT
  Age: 44 Year
  Sex: Female

DRUGS (18)
  1. NUCYNTA ER [Suspect]
     Indication: POST LAMINECTOMY SYNDROME
     Route: 048
     Dates: end: 201403
  2. NUCYNTA IR [Suspect]
     Indication: POST LAMINECTOMY SYNDROME
     Route: 048
     Dates: end: 201403
  3. DYCLONINE [Concomitant]
     Indication: PRODUCT USED FOR UNKNOWN INDICATION
     Route: 065
     Dates: end: 201403
  4. PREDNISONE [Concomitant]
     Indication: PRODUCT USED FOR UNKNOWN INDICATION
     Route: 065
     Dates: start: 20140203, end: 20140210
  5. MAGNESIUM [Concomitant]
     Indication: ADJUVANT THERAPY
     Route: 061
     Dates: end: 201403
  6. MAGNESIUM [Concomitant]
     Indication: CONDITION AGGRAVATED
     Route: 061
     Dates: end: 201403
  7. KETAMINE [Concomitant]
     Indication: ADJUVANT THERAPY
     Route: 061
     Dates: end: 201403
  8. KETAMINE [Concomitant]
     Indication: CONDITION AGGRAVATED
     Route: 061
     Dates: end: 201403
  9. LIDOCAINE [Concomitant]
     Indication: ADJUVANT THERAPY
     Route: 061
     Dates: end: 201403
  10. LIDOCAINE [Concomitant]
     Indication: CONDITION AGGRAVATED
     Route: 061
     Dates: end: 201403
  11. GABAPENTIN [Concomitant]
     Indication: ADJUVANT THERAPY
     Route: 061
     Dates: end: 201403
  12. GABAPENTIN [Concomitant]
     Indication: CONDITION AGGRAVATED
     Route: 061
     Dates: end: 201403
  13. AMITRIPTYLINE [Concomitant]
     Indication: ADJUVANT THERAPY
     Route: 061
     Dates: end: 201403
  14. AMITRIPTYLINE [Concomitant]
     Indication: CONDITION AGGRAVATED
     Route: 061
     Dates: end: 201403
  15. NABUMETONE [Concomitant]
     Indication: ADJUVANT THERAPY
     Route: 061
     Dates: end: 201403
  16. NABUMETONE [Concomitant]
     Indication: CONDITION AGGRAVATED
     Route: 061
     Dates: end: 201403
  17. PRILOCAINE [Concomitant]
     Indication: ADJUVANT THERAPY
     Route: 061
     Dates: end: 201403
  18. PRILOCAINE [Concomitant]
     Indication: CONDITION AGGRAVATED
     Route: 061
     Dates: end: 201403

REACTIONS (1)
  - Acute hepatic failure [Unknown]
